FAERS Safety Report 10183358 (Version 1)
Quarter: 2014Q2

REPORT INFORMATION
  Report Type: Spontaneous
  Country: US (occurrence: US)
  Receive Date: 20140520
  Receipt Date: 20140520
  Transmission Date: 20141212
  Serious: No
  Sender: FDA-Public Use
  Company Number: US-009507513-1405USA007409

PATIENT
  Sex: 0

DRUGS (2)
  1. REBETOL [Suspect]
     Indication: RESPIRATORY SYNCYTIAL VIRUS INFECTION
     Dosage: 600 OR  800 MG TWICE DAILY FOR 5-10 DAYS
     Route: 048
  2. GLOBULIN, IMMUNE [Suspect]
     Indication: RESPIRATORY SYNCYTIAL VIRUS INFECTION

REACTIONS (2)
  - Haemolytic anaemia [Unknown]
  - Lactic acidosis [Unknown]
